FAERS Safety Report 8152560-5 (Version None)
Quarter: 2012Q1

REPORT INFORMATION
  Report Type: 
  Country: None (occurrence: None)
  Receive Date: 20120221
  Receipt Date: 20120213
  Transmission Date: 20120608
  Serious: Yes (Other)
  Sender: FDA-Public Use
  Company Number: US-JNJFOC-20120207300

PATIENT
  Age: 53 Year
  Sex: Male
  Weight: 95.3 kg

DRUGS (52)
  1. DOXORUBICIN HCL [Suspect]
     Indication: MULTIPLE MYELOMA
     Dosage: CYCLE 2
     Route: 042
  2. DOXORUBICIN HCL [Suspect]
     Dosage: CYCLE 9
     Route: 042
  3. DOXORUBICIN HCL [Suspect]
     Dosage: CYCLE 10
     Route: 042
  4. BORTEZOMIB [Suspect]
     Route: 042
  5. BORTEZOMIB [Suspect]
     Route: 042
     Dates: start: 20120207
  6. CYCLOPHOSPHAMIDE [Suspect]
     Route: 042
  7. DOXORUBICIN HCL [Suspect]
     Dosage: CYCLE 8
     Route: 042
  8. DOXORUBICIN HCL [Suspect]
     Dosage: CYCLE 6
     Route: 042
  9. BORTEZOMIB [Suspect]
     Route: 042
  10. BORTEZOMIB [Suspect]
     Route: 042
     Dates: start: 20111024
  11. DEXAMETHASONE [Suspect]
     Route: 048
     Dates: start: 20120207
  12. CYCLOPHOSPHAMIDE [Suspect]
     Route: 042
  13. DOXORUBICIN HCL [Suspect]
     Dosage: CYCLE 7
     Route: 042
  14. DOXORUBICIN HCL [Suspect]
     Route: 042
     Dates: start: 20111020
  15. BORTEZOMIB [Suspect]
     Route: 042
  16. DEXAMETHASONE [Suspect]
     Route: 048
  17. DEXAMETHASONE [Suspect]
     Route: 048
  18. CYCLOPHOSPHAMIDE [Suspect]
     Route: 042
  19. CYCLOPHOSPHAMIDE [Suspect]
     Route: 042
  20. DOXORUBICIN HCL [Suspect]
     Dosage: CYCLE 13
     Route: 042
     Dates: start: 20120207
  21. BORTEZOMIB [Suspect]
     Route: 042
  22. DEXAMETHASONE [Suspect]
     Route: 048
  23. DEXAMETHASONE [Suspect]
     Route: 048
     Dates: start: 20110225
  24. CYCLOPHOSPHAMIDE [Suspect]
     Route: 042
  25. DOXORUBICIN HCL [Suspect]
     Dosage: CYCLE 11
     Route: 042
  26. BORTEZOMIB [Suspect]
     Indication: MULTIPLE MYELOMA
     Route: 042
  27. BORTEZOMIB [Suspect]
     Route: 042
  28. BORTEZOMIB [Suspect]
     Route: 042
  29. BORTEZOMIB [Suspect]
     Route: 042
  30. DEXAMETHASONE [Suspect]
     Route: 048
  31. CYCLOPHOSPHAMIDE [Suspect]
     Route: 042
  32. DOXORUBICIN HCL [Suspect]
     Dosage: OVER 1 HOUR ON DAY 4 (CYCLE 1)
     Route: 042
     Dates: start: 20110225
  33. DEXAMETHASONE [Suspect]
     Route: 048
  34. DEXAMETHASONE [Suspect]
     Route: 048
  35. DEXAMETHASONE [Suspect]
     Route: 048
  36. CYCLOPHOSPHAMIDE [Suspect]
     Route: 042
  37. BORTEZOMIB [Suspect]
     Route: 042
  38. DEXAMETHASONE [Suspect]
     Indication: MULTIPLE MYELOMA
     Route: 048
  39. DEXAMETHASONE [Suspect]
     Route: 048
     Dates: start: 20111028
  40. DEXAMETHASONE [Suspect]
     Route: 048
  41. CYCLOPHOSPHAMIDE [Suspect]
     Indication: MULTIPLE MYELOMA
     Route: 042
     Dates: start: 20111017
  42. CYCLOPHOSPHAMIDE [Suspect]
     Route: 042
  43. CYCLOPHOSPHAMIDE [Suspect]
     Route: 042
  44. DOXORUBICIN HCL [Suspect]
     Dosage: CYCLE 3
     Route: 042
  45. DOXORUBICIN HCL [Suspect]
     Dosage: CYCLE 5
     Route: 042
  46. DOXORUBICIN HCL [Suspect]
     Dosage: CYCLE 4
     Route: 042
  47. BORTEZOMIB [Suspect]
     Route: 042
  48. BORTEZOMIB [Suspect]
     Route: 042
     Dates: start: 20110225
  49. DEXAMETHASONE [Suspect]
     Route: 048
  50. CYCLOPHOSPHAMIDE [Suspect]
     Route: 042
     Dates: start: 20110225
  51. CYCLOPHOSPHAMIDE [Suspect]
     Route: 042
     Dates: start: 20120207
  52. CYCLOPHOSPHAMIDE [Suspect]
     Route: 042

REACTIONS (1)
  - PLATELET COUNT DECREASED [None]
